FAERS Safety Report 5793993-1 (Version None)
Quarter: 2008Q2

REPORT INFORMATION
  Report Type: 
  Country: None (occurrence: None)
  Receive Date: 20080627
  Receipt Date: 20080619
  Transmission Date: 20081010
  Serious: Yes (Hospitalization)
  Sender: FDA-Public Use
  Company Number: NL-PFIZER INC-2007101279

PATIENT
  Sex: Female
  Weight: 82 kg

DRUGS (8)
  1. MARAVIROC [Suspect]
     Indication: HIV TEST POSITIVE
     Route: 048
  2. RALTEGRAVIR [Suspect]
     Indication: HIV INFECTION
     Route: 048
  3. COTRIM [Concomitant]
     Route: 048
  4. KALETRA [Concomitant]
     Route: 048
     Dates: start: 20050223, end: 20071201
  5. LAMIVUDINE [Concomitant]
     Route: 048
     Dates: start: 19961001, end: 20071201
  6. TENOFOVIR DISOPROXIL FUMARATE [Concomitant]
     Route: 048
     Dates: start: 20050223, end: 20071201
  7. RITONAVIR [Concomitant]
     Route: 048
  8. TMC-114 [Concomitant]
     Route: 048

REACTIONS (2)
  - BLOOD AMYLASE INCREASED [None]
  - DRUG TOXICITY [None]
